FAERS Safety Report 8314730-2 (Version None)
Quarter: 2012Q1

REPORT INFORMATION
  Report Type: 
  Country: None (occurrence: None)
  Receive Date: 20120315
  Receipt Date: 20110427
  Transmission Date: 20120608
  Serious: Yes (Other)
  Sender: FDA-Public Use
  Company Number: PHHY2011US21624

PATIENT
  Age: 42 Year
  Sex: Female
  Weight: 72.6 kg

DRUGS (2)
  1. GILENYA [Suspect]
     Indication: RELAPSING-REMITTING MULTIPLE SCLEROSIS
     Dosage: 0.5 MG, DAILY, ORAL : 0.5 MG, QD, ORAL
     Route: 048
     Dates: start: 20110119, end: 20110310
  2. GILENYA [Suspect]
     Indication: RELAPSING-REMITTING MULTIPLE SCLEROSIS
     Dosage: 0.5 MG, DAILY, ORAL : 0.5 MG, QD, ORAL
     Route: 048
     Dates: start: 20110406

REACTIONS (3)
  - DRY MOUTH [None]
  - ORAL HERPES [None]
  - HERPES ZOSTER [None]
